FAERS Safety Report 14501731 (Version 1)
Quarter: 2018Q1

REPORT INFORMATION
  Report Type: Spontaneous
  Country: ES (occurrence: ES)
  Receive Date: 20180207
  Receipt Date: 20180207
  Transmission Date: 20180509
  Serious: Yes (Other)
  Sender: FDA-Public Use
  Company Number: ES-009507513-1802ESP003007

PATIENT
  Age: 62 Year
  Sex: Male

DRUGS (7)
  1. GENTAMICIN. [Concomitant]
     Active Substance: GENTAMICIN
  2. CEFTRIAXONE. [Concomitant]
     Active Substance: CEFTRIAXONE
  3. DAPTOMYCIN. [Suspect]
     Active Substance: DAPTOMYCIN
  4. CLOXACILLIN [Concomitant]
     Active Substance: CLOXACILLIN
     Route: 042
  5. ACETAMINOPHEN. [Concomitant]
     Active Substance: ACETAMINOPHEN
  6. ENOXAPARIN SODIUM. [Concomitant]
     Active Substance: ENOXAPARIN SODIUM
     Dosage: 40 MG DAILY
  7. LEVOFLOXACIN. [Concomitant]
     Active Substance: LEVOFLOXACIN

REACTIONS (1)
  - Toxic neuropathy [Recovering/Resolving]
